FAERS Safety Report 9475670 (Version 1)
Quarter: 2013Q3

REPORT INFORMATION
  Report Type: Spontaneous
  Country: FR (occurrence: FR)
  Receive Date: 20130826
  Receipt Date: 20130826
  Transmission Date: 20140515
  Serious: Yes (Other)
  Sender: FDA-Public Use
  Company Number: PHHY2013FR091266

PATIENT
  Age: 42 Year
  Sex: Male

DRUGS (1)
  1. METHYLPHENIDATE [Suspect]
     Dosage: 80 MG, UNK
     Route: 042

REACTIONS (14)
  - Dysphoria [Unknown]
  - Chills [Unknown]
  - Back pain [Unknown]
  - Drug dependence [Unknown]
  - Drug withdrawal syndrome [Unknown]
  - Drug abuse [Unknown]
  - Sleep disorder [Unknown]
  - Anxiety [Unknown]
  - Hyperhidrosis [Unknown]
  - Vomiting [Unknown]
  - Nausea [Unknown]
  - Abdominal pain [Unknown]
  - Weight decreased [Unknown]
  - Incorrect route of drug administration [Unknown]
